FAERS Safety Report 7767582-3 (Version None)
Quarter: 2011Q3

REPORT INFORMATION
  Report Type: 
  Country: None (occurrence: None)
  Receive Date: 20110922
  Receipt Date: 20110916
  Transmission Date: 20111222
  Serious: Yes (Other)
  Sender: FDA-Public Use
  Company Number: US-JNJFOC-20110903580

PATIENT
  Age: 2 Year
  Sex: Female
  Weight: 9.07 kg

DRUGS (2)
  1. ZYRTEC [Suspect]
     Route: 048
  2. ZYRTEC [Suspect]
     Indication: URTICARIA PIGMENTOSA
     Dosage: 1/2  OF A 10 MG TABLET EVERY DAY DURING THE SPRING AND FALL.
     Route: 048
     Dates: start: 20110905, end: 20110907

REACTIONS (4)
  - HAEMATOCHEZIA [None]
  - DIARRHOEA [None]
  - PRODUCT QUALITY ISSUE [None]
  - OFF LABEL USE [None]
